FAERS Safety Report 9779118 (Version 1)
Quarter: 2013Q4

REPORT INFORMATION
  Report Type: Spontaneous
  Country: US (occurrence: US)
  Receive Date: 20131223
  Receipt Date: 20131223
  Transmission Date: 20140711
  Serious: No
  Sender: FDA-Public Use
  Company Number: US-ENDO PHARMACEUTICALS INC.-OPCR20130367

PATIENT
  Sex: Male

DRUGS (1)
  1. OPANA ER 5MG [Suspect]
     Indication: PAIN
     Dosage: 5 MG
     Route: 048

REACTIONS (1)
  - Drug ineffective [Not Recovered/Not Resolved]
